FAERS Safety Report 16629919 (Version 1)
Quarter: 2019Q3

REPORT INFORMATION
  Report Type: Spontaneous
  Country: ES (occurrence: ES)
  Receive Date: 20190725
  Receipt Date: 20190725
  Transmission Date: 20191004
  Serious: Yes (Hospitalization)
  Sender: FDA-Public Use
  Company Number: ES-SUN PHARMACEUTICAL INDUSTRIES LTD-2019RR-214760

PATIENT
  Age: 77 Year
  Sex: Male

DRUGS (6)
  1. GENTAMICINA [Suspect]
     Active Substance: GENTAMICIN
     Indication: ENDOCARDITIS
     Dosage: 360 MILLIGRAM, DAILY
     Route: 042
     Dates: start: 20190306, end: 20190328
  2. DAPTOMICINA [Suspect]
     Active Substance: DAPTOMYCIN
     Indication: ENDOCARDITIS
     Dosage: 1250 MILLIGRAM, 1DOSE/24HOUR
     Route: 042
     Dates: start: 20190306
  3. PARACETAMOL [Suspect]
     Active Substance: ACETAMINOPHEN
     Indication: PYREXIA
     Dosage: 1 GRAM, TID
     Route: 042
     Dates: start: 20190306, end: 20190403
  4. METAMIZOL [Suspect]
     Active Substance: METAMIZOLE SODIUM
     Indication: PYREXIA
     Dosage: 2 GRAM, 1DOSE/6HOUR
     Route: 042
     Dates: start: 20190308, end: 20190403
  5. CLOROFILINA [Suspect]
     Active Substance: SODIUM COPPER CHLOROPHYLLIN
     Indication: ENDOCARDITIS
     Dosage: 2 GRAM, 1DOSE/4HOUR
     Route: 042
     Dates: start: 20190306, end: 20190404
  6. OMEPRAZOLE. [Suspect]
     Active Substance: OMEPRAZOLE
     Indication: GASTRITIS PROPHYLAXIS
     Dosage: 40 MILLIGRAM, DAILY
     Route: 042
     Dates: start: 20190306, end: 20190403

REACTIONS (1)
  - Drug reaction with eosinophilia and systemic symptoms [Recovered/Resolved]

NARRATIVE: CASE EVENT DATE: 20190312
